FAERS Safety Report 8262808 (Version 3)
Quarter: 2013Q1

REPORT INFORMATION
  Report Type: Spontaneous
  Country: US (occurrence: US)
  Receive Date: 20111124
  Receipt Date: 20130111
  Transmission Date: 20140127
  Serious: Yes (Other)
  Sender: FDA-Public Use
  Company Number: US-ROCHE-766018

PATIENT
  Age: 15 Year
  Sex: Male
  Weight: 66.7 kg

DRUGS (5)
  1. ACCUTANE [Suspect]
     Indication: ACNE
     Route: 048
  2. ACCUTANE [Suspect]
     Route: 065
     Dates: start: 19961031, end: 19970321
  3. ACCUTANE [Suspect]
     Route: 065
  4. PREDNISONE [Concomitant]
  5. MYCELEX [Concomitant]

REACTIONS (12)
  - Colitis ulcerative [Unknown]
  - Crohn^s disease [Unknown]
  - Inflammatory bowel disease [Unknown]
  - Depression [Unknown]
  - Suicidal ideation [Unknown]
  - Anaemia [Unknown]
  - Irritable bowel syndrome [Unknown]
  - Glossodynia [Unknown]
  - Lip dry [Unknown]
  - Epistaxis [Unknown]
  - Dry eye [Unknown]
  - Cheilitis [Unknown]
